FAERS Safety Report 9809688 (Version 2)
Quarter: 2014Q1

REPORT INFORMATION
  Report Type: Report from Study
  Country: US (occurrence: US)
  Receive Date: 20140110
  Receipt Date: 20140110
  Transmission Date: 20141002
  Serious: Yes (Other)
  Sender: FDA-Public Use
  Company Number: US-ABBVIE-13P-163-1185231-00

PATIENT
  Age: 29 Year
  Sex: Male
  Weight: 102.15 kg

DRUGS (3)
  1. HUMIRA [Suspect]
     Indication: PSORIASIS
     Dates: end: 20131121
  2. CELEXA [Concomitant]
     Indication: DEPRESSION
  3. TYLENOL [Concomitant]
     Indication: PAIN

REACTIONS (3)
  - Splenomegaly [Unknown]
  - Upper limb fracture [Recovering/Resolving]
  - Leukocytosis [Not Recovered/Not Resolved]
